FAERS Safety Report 17765075 (Version 1)
Quarter: 2020Q2

REPORT INFORMATION
  Report Type: Spontaneous
  Country: ES (occurrence: ES)
  Receive Date: 20200511
  Receipt Date: 20200511
  Transmission Date: 20200714
  Serious: Yes (Death, Other)
  Sender: FDA-Public Use
  Company Number: ES-ACCORD-181155

PATIENT
  Age: 95 Year
  Sex: Female

DRUGS (9)
  1. QUETIAPINE. [Suspect]
     Active Substance: QUETIAPINE
     Indication: AGITATION
     Route: 048
     Dates: start: 20200312, end: 20200313
  2. KALETRA [Interacting]
     Active Substance: LOPINAVIR\RITONAVIR
     Indication: CORONAVIRUS INFECTION
     Dosage: 200/50 MG FILM-COATED TABLETS, 120 TABLETS
     Route: 048
     Dates: start: 20200312, end: 20200314
  3. FUROSEMIDE. [Concomitant]
     Active Substance: FUROSEMIDE
     Route: 048
     Dates: start: 20200313, end: 20200314
  4. CLINDAMYCIN. [Concomitant]
     Active Substance: CLINDAMYCIN
     Indication: PNEUMONIA
     Route: 042
     Dates: start: 20200312, end: 20200314
  5. LOSARTAN. [Concomitant]
     Active Substance: LOSARTAN
     Route: 048
     Dates: start: 20200313, end: 20200314
  6. LEVOFLOXACIN/LEVOFLOXACIN MESYLATE [Interacting]
     Active Substance: LEVOFLOXACIN
     Indication: PNEUMONIA
     Route: 042
     Dates: start: 20200312, end: 20200314
  7. HYDROXYCHLOROQUINE [Interacting]
     Active Substance: HYDROXYCHLOROQUINE
     Indication: CORONAVIRUS INFECTION
     Route: 048
     Dates: start: 20200313, end: 20200314
  8. RISPERIDONE. [Interacting]
     Active Substance: RISPERIDONE
     Indication: AGITATION
     Route: 048
     Dates: start: 20200312, end: 20200313
  9. LORAZEPAM. [Concomitant]
     Active Substance: LORAZEPAM
     Route: 048
     Dates: start: 20200312, end: 20200313

REACTIONS (2)
  - Sudden death [Fatal]
  - Drug interaction [Unknown]

NARRATIVE: CASE EVENT DATE: 20200314
